FAERS Safety Report 25861678 (Version 1)
Quarter: 2025Q3

REPORT INFORMATION
  Report Type: Report from Study
  Country: EU (occurrence: EU)
  Receive Date: 20250930
  Receipt Date: 20250930
  Transmission Date: 20251021
  Serious: Yes (Hospitalization)
  Sender: TEVA
  Company Number: None

PATIENT
  Age: 67 Year
  Sex: Female

DRUGS (14)
  1. LORAZEPAM [Suspect]
     Active Substance: LORAZEPAM
     Indication: Bipolar I disorder
     Route: 048
     Dates: end: 20250606
  2. TIROSINT [Concomitant]
     Active Substance: LEVOTHYROXINE SODIUM
     Indication: Hypothyroidism
     Route: 048
  3. ASPIRIN [Concomitant]
     Active Substance: ASPIRIN
     Indication: Prophylaxis
     Dosage: CARDIOASPIRIN 100 MG, 1 TABLET PER DAY
     Route: 048
  4. LINAGLIPTIN [Concomitant]
     Active Substance: LINAGLIPTIN
     Indication: Type 2 diabetes mellitus
     Dosage: TRAJENTA 5 MG, 1/2 CP DIE
     Route: 048
  5. METFORMIN HYDROCHLORIDE [Concomitant]
     Active Substance: METFORMIN HYDROCHLORIDE
     Indication: Type 2 diabetes mellitus
     Dosage: SLOWMET 750 MG, 1 TABLET 2/DAY
     Route: 048
  6. NEBIVOLOL HYDROCHLORIDE [Concomitant]
     Active Substance: NEBIVOLOL HYDROCHLORIDE
     Indication: Hypertension
     Dosage: NOBISTAR 5 MG, 1 TABLET DAILY
     Route: 048
  7. ATORVASTATIN [Concomitant]
     Active Substance: ATORVASTATIN
     Indication: Prophylaxis
     Dosage: ATORVASTATIN 20 MG, 1 TABLET DAILY
     Route: 048
  8. OLANZAPINE [Concomitant]
     Active Substance: OLANZAPINE
     Indication: Bipolar I disorder
     Dosage: OLANZAPINE 5 MG, 2 TABLETS DAILY
     Route: 048
  9. LOSARTAN [Concomitant]
     Active Substance: LOSARTAN
     Indication: Hypertension
     Dosage: LOSARTAN 50 MG, 1 TABLET 2/DAY
     Route: 048
  10. NIMOTOP [Concomitant]
     Active Substance: NIMODIPINE
     Indication: Arteriosclerosis
     Dosage: NIMOTOP 30 MG, 1 TABLET DAILY
     Route: 048
  11. OMEPRAZOLE [Concomitant]
     Active Substance: OMEPRAZOLE
     Indication: Dyspepsia
     Dosage: OMEPRAZOLE 20 MG, 1 TABLET DAILY
     Route: 048
  12. TIROSINT [Concomitant]
     Active Substance: LEVOTHYROXINE SODIUM
     Indication: Hypothyroidism
     Route: 048
  13. CARDURA [Concomitant]
     Active Substance: DOXAZOSIN MESYLATE
     Indication: Hypertension
     Dosage: CARDURA 2 MG, 1 TABLET DAILY
     Route: 048
  14. VALPROATE SODIUM [Concomitant]
     Active Substance: VALPROATE SODIUM
     Indication: Bipolar I disorder
     Dosage: DEPAKINE 500 MG, 1 TABLET TWICE A DAY
     Route: 048

REACTIONS (2)
  - Sopor [Recovered/Resolved]
  - Drug abuse [Recovered/Resolved]

NARRATIVE: CASE EVENT DATE: 20250606
